FAERS Safety Report 6298190-1 (Version None)
Quarter: 2009Q3

REPORT INFORMATION
  Report Type: 
  Country: None (occurrence: None)
  Receive Date: 20090805
  Receipt Date: 20090722
  Transmission Date: 20100115
  Serious: Yes (Life-Threatening)
  Sender: FDA-Public Use
  Company Number: GB-MYLANLABS-2009S1013024

PATIENT
  Age: 83 Year
  Sex: Male

DRUGS (5)
  1. DOXAZOSIN MESYLATE [Suspect]
     Indication: HYPERTENSION
     Route: 048
     Dates: end: 20090702
  2. BENDROFLUAZIDE [Suspect]
     Indication: HYPERTENSION
     Dates: end: 20090702
  3. ASPIRIN [Suspect]
     Indication: HYPERTENSION
     Route: 048
     Dates: end: 20000702
  4. BISOPROLOL [Concomitant]
     Indication: ANGINA PECTORIS
  5. FINASTERIDE [Concomitant]
     Indication: BENIGN PROSTATIC HYPERPLASIA
     Route: 048

REACTIONS (7)
  - CHEST PAIN [None]
  - CONTUSION [None]
  - DIZZINESS [None]
  - EPISTAXIS [None]
  - SNEEZING [None]
  - THROMBOCYTOPENIA [None]
  - TREMOR [None]
